FAERS Safety Report 21334288 (Version 9)
Quarter: 2023Q4

REPORT INFORMATION
  Report Type: Report from Study
  Country: IE (occurrence: IE)
  Receive Date: 20220914
  Receipt Date: 20231211
  Transmission Date: 20240110
  Serious: Yes (Hospitalization)
  Sender: FDA-Public Use
  Company Number: IE-TAKEDA-2022TUS049275

PATIENT
  Age: 65 Year
  Sex: Male

DRUGS (7)
  1. HUMAN IMMUNOGLOBULIN G\HYALURONIDASE RECOMBINANT HUMAN [Suspect]
     Active Substance: HUMAN IMMUNOGLOBULIN G\HYALURONIDASE (HUMAN RECOMBINANT)
     Indication: Chronic lymphocytic leukaemia
     Dosage: 45 GRAM, Q4WEEKS
     Route: 065
  2. HUMAN IMMUNOGLOBULIN G\HYALURONIDASE RECOMBINANT HUMAN [Suspect]
     Active Substance: HUMAN IMMUNOGLOBULIN G\HYALURONIDASE (HUMAN RECOMBINANT)
     Indication: Immunodeficiency
     Dosage: 45 GRAM, Q4WEEKS
     Route: 058
     Dates: start: 20220627
  3. PANTOPRAZOLE [Concomitant]
     Active Substance: PANTOPRAZOLE
     Dosage: 40 MILLIGRAM, QD
     Route: 048
  4. TIOTROPIUM [Concomitant]
     Active Substance: TIOTROPIUM
     Dosage: 10 MICROGRAM, QD
     Route: 048
  5. FAMCICLOVIR TEVA [Concomitant]
     Dosage: 500 MILLIGRAM, BID
     Route: 048
  6. NYSTATIN [Concomitant]
     Active Substance: NYSTATIN
     Dosage: 1 MILLILITER, QID
     Route: 050
  7. SULFAMETHOXAZOLE\TRIMETHOPRIM [Concomitant]
     Active Substance: SULFAMETHOXAZOLE\TRIMETHOPRIM
     Dosage: 480 MILLIGRAM, QD
     Route: 048

REACTIONS (9)
  - Psoriasis [Not Recovered/Not Resolved]
  - Abdominal discomfort [Unknown]
  - Treatment noncompliance [Recovered/Resolved]
  - Erythema [Unknown]
  - Post procedural infection [Not Recovered/Not Resolved]
  - Skin disorder [Recovering/Resolving]
  - Cough [Recovered/Resolved]
  - Arthralgia [Recovering/Resolving]
  - Inappropriate schedule of product administration [Recovered/Resolved]

NARRATIVE: CASE EVENT DATE: 20220718
